FAERS Safety Report 12922178 (Version 1)
Quarter: 2016Q4

REPORT INFORMATION
  Report Type: Spontaneous
  Country: US (occurrence: US)
  Receive Date: 20161107
  Receipt Date: 20161107
  Transmission Date: 20170207
  Serious: No
  Sender: FDA-Public Use
  Company Number: None

PATIENT
  Age: 53 Year
  Sex: Female
  Weight: 129 kg

DRUGS (1)
  1. TOLTERODINE 4MG [Suspect]
     Active Substance: TOLTERODINE
     Indication: URGE INCONTINENCE
     Route: 048
     Dates: start: 20141107, end: 20151020

REACTIONS (3)
  - Eating disorder [None]
  - Aptyalism [None]
  - Dry mouth [None]

NARRATIVE: CASE EVENT DATE: 20141130
